FAERS Safety Report 15309379 (Version 1)
Quarter: 2018Q4

REPORT INFORMATION
  Report Type: Report from Study
  Country: CH (occurrence: CH)
  Receive Date: 20180823
  Receipt Date: 20180823
  Transmission Date: 20190204
  Serious: Yes (Other)
  Sender: FDA-Public Use
  Company Number: CH-ACCORD-070970

PATIENT

DRUGS (1)
  1. GEMCITABINE/GEMCITABINE HYDROCHLORIDE [Suspect]
     Active Substance: GEMCITABINE\GEMCITABINE HYDROCHLORIDE
     Indication: ADENOCARCINOMA PANCREAS
     Dosage: BI-WEEKLY

REACTIONS (1)
  - Gastrointestinal haemorrhage [Unknown]
